FAERS Safety Report 10050310 (Version 2)
Quarter: 2014Q2

REPORT INFORMATION
  Report Type: Spontaneous
  Country: CZ (occurrence: CZ)
  Receive Date: 20140401
  Receipt Date: 20140401
  Transmission Date: 20141212
  Serious: Yes (Other)
  Sender: FDA-Public Use
  Company Number: PHHY2014CZ033107

PATIENT
  Age: 83 Year
  Sex: Male

DRUGS (1)
  1. DEGAN [Suspect]
     Indication: POSTOPERATIVE ILEUS
     Dosage: 1 DF, Q8H
     Route: 051
     Dates: start: 20140309, end: 20140309

REACTIONS (2)
  - Lip swelling [Recovered/Resolved]
  - Product quality issue [Unknown]
